FAERS Safety Report 10589487 (Version 1)
Quarter: 2014Q4

REPORT INFORMATION
  Report Type: Spontaneous
  Country: US (occurrence: None)
  Receive Date: 20141114
  Receipt Date: 20141114
  Transmission Date: 20150529
  Serious: Yes (Other)
  Sender: FDA-Public Use
  Company Number: 2615001

PATIENT
  Age: 63 Year
  Sex: Female

DRUGS (6)
  1. ONDANSETRON [Concomitant]
     Active Substance: ONDANSETRON
  2. COAPROVEL [Concomitant]
     Active Substance: HYDROCHLOROTHIAZIDE\IRBESARTAN
  3. RANITIDINA ANGENERICO [Concomitant]
     Active Substance: RANITIDINE HYDROCHLORIDE
  4. CARDIOASPIRIN [Concomitant]
     Active Substance: ASPIRIN
  5. DOCETAXEL. [Suspect]
     Active Substance: DOCETAXEL
     Indication: BREAST CANCER
     Dosage: TOTAL, NOT OTHERWISE SPECIFIED
     Route: 042
     Dates: start: 20141013, end: 20141013
  6. DEXAMETHASONE. [Concomitant]
     Active Substance: DEXAMETHASONE

REACTIONS (5)
  - Pyrexia [None]
  - Mucosal inflammation [None]
  - Product quality issue [None]
  - Epistaxis [None]
  - Diarrhoea [None]

NARRATIVE: CASE EVENT DATE: 20141015
